FAERS Safety Report 8184834-6 (Version None)
Quarter: 2012Q1

REPORT INFORMATION
  Report Type: 
  Country: None (occurrence: None)
  Receive Date: 20120305
  Receipt Date: 20120229
  Transmission Date: 20120608
  Serious: Yes (Other)
  Sender: FDA-Public Use
  Company Number: DE-BAXTER-2012BH005137

PATIENT
  Age: 77 Year
  Sex: Male
  Weight: 77 kg

DRUGS (2)
  1. GAMMAGARD LIQUID [Suspect]
     Indication: MYASTHENIA GRAVIS
     Route: 042
     Dates: start: 20120217, end: 20120217
  2. GAMMAGARD LIQUID [Suspect]
     Indication: OFF LABEL USE
     Route: 042
     Dates: start: 20120217, end: 20120217

REACTIONS (6)
  - BACK PAIN [None]
  - HYPOTENSION [None]
  - TACHYCARDIA [None]
  - HYPERSENSITIVITY [None]
  - CHILLS [None]
  - PAIN IN EXTREMITY [None]
